FAERS Safety Report 26010009 (Version 1)
Quarter: 2025Q4

REPORT INFORMATION
  Report Type: Spontaneous
  Country: JP (occurrence: JP)
  Receive Date: 20251107
  Receipt Date: 20251107
  Transmission Date: 20260117
  Serious: Yes (Hospitalization, Other)
  Sender: Steriscience PTE
  Company Number: JP-STERISCIENCE B.V.-2025-ST-001605

PATIENT
  Age: 75 Year
  Sex: Male

DRUGS (12)
  1. VANCOMYCIN [Suspect]
     Active Substance: VANCOMYCIN
     Indication: Corynebacterium infection
     Dosage: UNK
     Route: 065
  2. VANCOMYCIN [Suspect]
     Active Substance: VANCOMYCIN
     Indication: Endocarditis
  3. VANCOMYCIN [Suspect]
     Active Substance: VANCOMYCIN
     Indication: Antibiotic therapy
  4. AMPICILLIN SODIUM\SULBACTAM SODIUM [Concomitant]
     Active Substance: AMPICILLIN SODIUM\SULBACTAM SODIUM
     Indication: Corynebacterium infection
     Dosage: UNK
     Route: 065
  5. AMPICILLIN SODIUM\SULBACTAM SODIUM [Concomitant]
     Active Substance: AMPICILLIN SODIUM\SULBACTAM SODIUM
     Indication: Antibiotic therapy
  6. AMPICILLIN SODIUM\SULBACTAM SODIUM [Concomitant]
     Active Substance: AMPICILLIN SODIUM\SULBACTAM SODIUM
     Indication: Endocarditis
  7. DAPTOMYCIN [Concomitant]
     Active Substance: DAPTOMYCIN
     Indication: Corynebacterium infection
     Dosage: UNK
     Route: 065
  8. DAPTOMYCIN [Concomitant]
     Active Substance: DAPTOMYCIN
     Indication: Antibiotic therapy
  9. DAPTOMYCIN [Concomitant]
     Active Substance: DAPTOMYCIN
     Indication: Endocarditis
  10. MINOCYCLINE [Concomitant]
     Active Substance: MINOCYCLINE HYDROCHLORIDE
     Indication: Corynebacterium infection
     Dosage: UNK
     Route: 065
  11. MINOCYCLINE [Concomitant]
     Active Substance: MINOCYCLINE HYDROCHLORIDE
     Indication: Antibiotic therapy
  12. MINOCYCLINE [Concomitant]
     Active Substance: MINOCYCLINE HYDROCHLORIDE
     Indication: Endocarditis

REACTIONS (1)
  - Pneumonitis [Unknown]
